FAERS Safety Report 25648751 (Version 1)
Quarter: 2025Q3

REPORT INFORMATION
  Report Type: Spontaneous
  Country: EU (occurrence: EU)
  Receive Date: 20250806
  Receipt Date: 20250806
  Transmission Date: 20251021
  Serious: Yes (Other)
  Sender: AUROBINDO
  Company Number: EU-AUROBINDO-AUR-APL-2025-040135

PATIENT
  Age: 59 Year
  Sex: Male

DRUGS (19)
  1. DARUNAVIR [Suspect]
     Active Substance: DARUNAVIR
     Indication: Trigeminal neuralgia
     Dosage: 800 MILLIGRAM, ONCE A DAY
     Route: 065
     Dates: start: 201911
  2. DARUNAVIR [Suspect]
     Active Substance: DARUNAVIR
     Dosage: 800 MILLIGRAM, ONCE A DAY
     Route: 065
     Dates: start: 202005
  3. DARUNAVIR [Suspect]
     Active Substance: DARUNAVIR
     Dosage: 800 MILLIGRAM, ONCE A DAY
     Route: 065
     Dates: start: 202008
  4. DARUNAVIR [Suspect]
     Active Substance: DARUNAVIR
     Dosage: 800 MILLIGRAM, ONCE A DAY
     Route: 065
     Dates: start: 202009
  5. DARUNAVIR [Suspect]
     Active Substance: DARUNAVIR
     Dosage: 800 MILLIGRAM, ONCE A DAY
     Route: 065
     Dates: start: 202010
  6. DARUNAVIR [Suspect]
     Active Substance: DARUNAVIR
     Dosage: 800 MILLIGRAM, ONCE A DAY
     Route: 065
     Dates: start: 202011
  7. DARUNAVIR [Suspect]
     Active Substance: DARUNAVIR
     Dosage: 800 MILLIGRAM, ONCE A DAY
     Route: 065
     Dates: start: 202103
  8. DARUNAVIR [Suspect]
     Active Substance: DARUNAVIR
     Dosage: 800 MILLIGRAM, ONCE A DAY
     Route: 065
     Dates: start: 202107
  9. DARUNAVIR [Suspect]
     Active Substance: DARUNAVIR
     Dosage: 600 MILLIGRAM, TWO TIMES A DAY
     Route: 065
     Dates: start: 202202
  10. CARBAMAZEPINE [Suspect]
     Active Substance: CARBAMAZEPINE
     Indication: Trigeminal neuralgia
     Route: 065
     Dates: start: 202005
  11. CARBAMAZEPINE [Suspect]
     Active Substance: CARBAMAZEPINE
     Dosage: 200 MILLIGRAM, TWO TIMES A DAY
     Route: 065
     Dates: start: 202008
  12. CARBAMAZEPINE [Suspect]
     Active Substance: CARBAMAZEPINE
     Route: 065
     Dates: start: 202009
  13. CARBAMAZEPINE [Suspect]
     Active Substance: CARBAMAZEPINE
     Route: 065
     Dates: start: 202010
  14. CARBAMAZEPINE [Suspect]
     Active Substance: CARBAMAZEPINE
     Dosage: 200 MILLIGRAM, 3 TIMES A DAY
     Route: 065
     Dates: start: 202011
  15. CARBAMAZEPINE [Suspect]
     Active Substance: CARBAMAZEPINE
     Dosage: 200 MILLIGRAM, 3 TIMES A DAY
     Route: 065
     Dates: start: 202103
  16. CARBAMAZEPINE [Suspect]
     Active Substance: CARBAMAZEPINE
     Dosage: 200 MILLIGRAM, TWO TIMES A DAY
     Route: 065
     Dates: start: 202107
  17. CARBAMAZEPINE [Suspect]
     Active Substance: CARBAMAZEPINE
     Dosage: 200 MILLIGRAM, ONCE A DAY
     Route: 065
     Dates: start: 202202
  18. COBICISTAT\DARUNAVIR ETHANOLATE [Suspect]
     Active Substance: COBICISTAT\DARUNAVIR ETHANOLATE
     Indication: HIV infection
     Dosage: UNK, ONCE A DAY (150/800 MG/DAY)
     Route: 065
  19. RALTEGRAVIR [Concomitant]
     Active Substance: RALTEGRAVIR
     Indication: Product used for unknown indication
     Dosage: 400 MILLIGRAM, TWO TIMES A DAY
     Route: 065

REACTIONS (4)
  - Drug interaction [Unknown]
  - Drug level increased [Unknown]
  - Therapeutic product effect decreased [Unknown]
  - Therapeutic response decreased [Unknown]
